FAERS Safety Report 9393592 (Version 1)
Quarter: 2013Q3

REPORT INFORMATION
  Report Type: Spontaneous
  Country: NL (occurrence: NL)
  Receive Date: 20130710
  Receipt Date: 20130710
  Transmission Date: 20140515
  Serious: Yes (Hospitalization, Other)
  Sender: FDA-Public Use
  Company Number: NL-MERCK-1307NLD000314

PATIENT
  Age: 31 Year
  Sex: Female
  Weight: 68 kg

DRUGS (1)
  1. MIRTAZAPINE [Suspect]
     Indication: DEPRESSION
     Dosage: 1 TIMES PER 1 DAYS 30 MG
     Route: 048
     Dates: start: 20130227, end: 20130227

REACTIONS (2)
  - Coma [Recovered/Resolved]
  - Syncope [Recovered/Resolved]
